FAERS Safety Report 4906459-5 (Version None)
Quarter: 2006Q1

REPORT INFORMATION
  Report Type: 
  Country: None (occurrence: None)
  Receive Date: 20060209
  Receipt Date: 20051227
  Transmission Date: 20060701
  Serious: Yes (Other)
  Sender: FDA-Public Use
  Company Number: 2005AP06618

PATIENT
  Age: 18697 Day
  Sex: Female
  Weight: 65 kg

DRUGS (9)
  1. OMEPRAL [Suspect]
     Indication: REFLUX OESOPHAGITIS
     Route: 048
     Dates: start: 20051213, end: 20051222
  2. OLMETEC [Concomitant]
     Indication: HYPERTENSION
     Route: 048
     Dates: start: 20050624
  3. GLUCOBAY [Concomitant]
     Indication: DIABETES MELLITUS
     Route: 048
     Dates: start: 20050930
  4. LIVALO [Concomitant]
     Indication: HYPERLIPIDAEMIA
     Route: 048
     Dates: start: 20050930
  5. MYSLEE [Concomitant]
     Indication: INSOMNIA
     Route: 048
     Dates: start: 20050930, end: 20051027
  6. CRAVIT [Concomitant]
     Indication: IMPETIGO
     Route: 048
     Dates: start: 20051111, end: 20051115
  7. DASEN [Concomitant]
     Indication: IMPETIGO
     Route: 048
     Dates: start: 20051111, end: 20051115
  8. SELBEX [Concomitant]
     Indication: IMPETIGO
     Route: 048
     Dates: start: 20051111, end: 20051115
  9. ACINON [Concomitant]
     Indication: GASTRITIS
     Route: 048
     Dates: start: 20051118, end: 20051211

REACTIONS (5)
  - ERYTHEMA [None]
  - INDURATION [None]
  - PRURITUS [None]
  - PURPURA [None]
  - TENDERNESS [None]
